FAERS Safety Report 5221505-X (Version None)
Quarter: 2007Q1

REPORT INFORMATION
  Report Type: 
  Country: None (occurrence: None)
  Receive Date: 20070126
  Receipt Date: 20070118
  Transmission Date: 20070707
  Serious: Yes (Hospitalization)
  Sender: FDA-Public Use
  Company Number: PFIZER INC-2007005496

PATIENT
  Sex: Male

DRUGS (6)
  1. VIRACEPT [Suspect]
     Indication: HIV INFECTION
     Route: 048
     Dates: start: 20040928, end: 20041118
  2. RETROVIR [Suspect]
     Indication: HIV INFECTION
     Route: 048
     Dates: start: 20040926, end: 20041118
  3. EPIVIR [Suspect]
     Indication: HIV INFECTION
     Route: 048
     Dates: start: 20040928, end: 20041118
  4. NEVIRAPINE [Suspect]
     Route: 048
     Dates: start: 20040925, end: 20040925
  5. MARIJUANA [Suspect]
  6. SULFAMETHOXAZOLE W/TRIMETHOPRIM [Concomitant]
     Route: 048
     Dates: start: 20041108, end: 20050526

REACTIONS (1)
  - EPILEPSY [None]
